FAERS Safety Report 12421778 (Version 1)
Quarter: 2016Q2

REPORT INFORMATION
  Report Type: Spontaneous
  Country: US (occurrence: US)
  Receive Date: 20160531
  Receipt Date: 20160531
  Transmission Date: 20160815
  Serious: No
  Sender: FDA-Public Use
  Company Number: US-PFIZER INC-2016260973

PATIENT
  Sex: Female

DRUGS (1)
  1. METAXALONE. [Suspect]
     Active Substance: METAXALONE
     Dosage: UNK
     Dates: start: 2013

REACTIONS (2)
  - Drug ineffective [Unknown]
  - Product substitution issue [Unknown]
